FAERS Safety Report 8757442 (Version 1)
Quarter: 2012Q4

REPORT INFORMATION
  Report Type: 
  Country: US (occurrence: US)
  Receive Date: 20120828
  Receipt Date: 20120828
  Transmission Date: 20130627
  Serious: No
  Sender: FDA-Public Use
  Company Number: US-PFIZER INC-2012206553

PATIENT
  Sex: Male

DRUGS (2)
  1. DIDREX [Suspect]
     Dosage: UNK
  2. ADDERALL [Suspect]
     Dosage: UNK

REACTIONS (1)
  - Drug screen positive [Unknown]
